FAERS Safety Report 16927382 (Version 1)
Quarter: 2019Q4

REPORT INFORMATION
  Report Type: Spontaneous
  Country: IE (occurrence: IE)
  Receive Date: 20191016
  Receipt Date: 20191016
  Transmission Date: 20200122
  Serious: No
  Sender: FDA-Public Use
  Company Number: IE-OPTINOSE US, INC-2019OPT000793

PATIENT
  Age: 2 Year
  Sex: Male
  Weight: 11.6 kg

DRUGS (3)
  1. FLUTICASONE. [Suspect]
     Active Substance: FLUTICASONE
     Indication: COUGH
     Route: 065
  2. SALBUTAMOL [Concomitant]
     Active Substance: ALBUTEROL
     Route: 065
  3. AMOXICILLIN. [Concomitant]
     Active Substance: AMOXICILLIN
     Route: 065

REACTIONS (3)
  - Product use issue [Unknown]
  - No adverse event [Unknown]
  - Product use in unapproved indication [Unknown]
